FAERS Safety Report 8804002 (Version 1)
Quarter: 2012Q4

REPORT INFORMATION
  Report Type: 
  Country: US (occurrence: US)
  Receive Date: 20120924
  Receipt Date: 20120924
  Transmission Date: 20130627
  Serious: Yes (Hospitalization)
  Sender: FDA-Public Use
  Company Number: US-GLAXOSMITHKLINE-A0993866A

PATIENT
  Age: 74 Year
  Sex: Male

DRUGS (6)
  1. ADVAIR [Suspect]
     Indication: EMPHYSEMA
     Dosage: 1PUFF Twice per day
     Route: 055
  2. VENTOLIN [Concomitant]
  3. OXYGEN [Concomitant]
  4. METOPROLOL [Concomitant]
  5. NICOTINE PATCH [Concomitant]
  6. SPIRIVA [Concomitant]
     Indication: PRODUCT USED FOR UNKNOWN INDICATION

REACTIONS (6)
  - Myocardial infarction [Recovered/Resolved]
  - Pruritus [Not Recovered/Not Resolved]
  - Dyspnoea [Not Recovered/Not Resolved]
  - Sinus congestion [Recovered/Resolved]
  - Sinusitis [Recovered/Resolved]
  - Sinus disorder [Recovered/Resolved]
